FAERS Safety Report 4579715-0 (Version None)
Quarter: 2005Q1

REPORT INFORMATION
  Report Type: 
  Country: None (occurrence: None)
  Receive Date: 20050214
  Receipt Date: 20050120
  Transmission Date: 20050727
  Serious: Yes (Hospitalization, Other)
  Sender: FDA-Public Use
  Company Number: PHNU2005DE00610

PATIENT
  Age: 70 Year
  Sex: Female
  Weight: 84 kg

DRUGS (16)
  1. DICLOFENAC [Suspect]
     Indication: DIAGNOSTIC PROCEDURE
     Dosage: 0.1 ML, ONCE/SINGLE
     Dates: start: 20040115
  2. DICLOFENAC [Suspect]
     Dates: start: 19990101
  3. RANITIDINE [Concomitant]
  4. CLEMASTINE [Concomitant]
  5. PREDNISOLONE [Concomitant]
  6. ACETAMINOPHEN [Suspect]
     Indication: DIAGNOSTIC PROCEDURE
     Dosage: UNK, UNK
     Dates: start: 20040115
  7. ACETAMINOPHEN [Suspect]
     Dates: start: 20031201
  8. MEPIVACAINE [Concomitant]
     Indication: DIAGNOSTIC PROCEDURE
     Dates: start: 20040115
  9. ACERCOMP [Concomitant]
     Indication: HYPERTENSION
     Dosage: 1 DF, QD
  10. AMILORIDE [Concomitant]
     Indication: HYPERTENSION
     Dosage: 1 DF, QD
  11. METOPROLOL SUCCINATE [Concomitant]
     Dosage: 0.5 DF, BID
  12. PLAVIX [Concomitant]
     Indication: HYPERTENSION
     Dosage: 1 DF, QD
  13. LOVASTATIN [Concomitant]
     Indication: LIPID METABOLISM DISORDER
     Dosage: 0.5 DF, QD
  14. TRIAMCINOLONE [Suspect]
     Dates: start: 20031201
  15. SCANDICAIN [Suspect]
     Dates: start: 20031201
  16. VOLTAREN [Suspect]
     Dates: start: 19990101

REACTIONS (7)
  - ANAPHYLACTIC REACTION [None]
  - BLOOD PRESSURE DECREASED [None]
  - CIRCULATORY COLLAPSE [None]
  - ENURESIS [None]
  - PRURITUS [None]
  - SHOCK [None]
  - SWELLING FACE [None]
